FAERS Safety Report 9563239 (Version 2)
Quarter: 2013Q3

REPORT INFORMATION
  Report Type: Spontaneous
  Country: GB (occurrence: GB)
  Receive Date: 20130927
  Receipt Date: 20130927
  Transmission Date: 20140515
  Serious: Yes (Other)
  Sender: FDA-Public Use
  Company Number: GB-ABBVIE-12P-167-0986885-00

PATIENT
  Age: 39 Year
  Sex: Male

DRUGS (5)
  1. VALPROIC ACID [Suspect]
     Indication: SCHIZOPHRENIA
     Route: 048
     Dates: start: 20120702
  2. VALPROIC ACID [Suspect]
     Indication: AFFECTIVE DISORDER
  3. ZOCOR [Suspect]
     Indication: PRODUCT USED FOR UNKNOWN INDICATION
     Route: 048
     Dates: start: 2007, end: 20120724
  4. OLANZAPINE [Concomitant]
     Indication: SCHIZOPHRENIA
     Dosage: AT NIGHT
     Dates: start: 2005
  5. CITALOPRAM [Concomitant]
     Indication: DEPRESSION
     Dates: start: 2008

REACTIONS (2)
  - Blood creatine phosphokinase increased [Recovered/Resolved]
  - Myalgia [Recovered/Resolved]
